FAERS Safety Report 23091437 (Version 5)
Quarter: 2024Q3

REPORT INFORMATION
  Report Type: Spontaneous
  Country: US (occurrence: US)
  Receive Date: 20231020
  Receipt Date: 20240906
  Transmission Date: 20241017
  Serious: Yes (Other)
  Sender: BRISTOL MYERS SQUIBB
  Company Number: US-BRISTOL-MYERS SQUIBB COMPANY-2023-148534

PATIENT
  Age: 71 Year
  Sex: Female

DRUGS (2)
  1. REVLIMID [Suspect]
     Active Substance: LENALIDOMIDE
     Indication: Plasma cell myeloma
     Dosage: DAILY/QD
     Route: 048
     Dates: start: 202302
  2. REVLIMID [Suspect]
     Active Substance: LENALIDOMIDE
     Indication: Myelodysplastic syndrome

REACTIONS (4)
  - Hallucinations, mixed [Unknown]
  - Product availability issue [Unknown]
  - Therapy interrupted [Unknown]
  - Product dose omission issue [Unknown]
